FAERS Safety Report 12641781 (Version 3)
Quarter: 2016Q3

REPORT INFORMATION
  Report Type: Spontaneous
  Country: JP (occurrence: JP)
  Receive Date: 20160810
  Receipt Date: 20160906
  Transmission Date: 20161109
  Serious: Yes (Other)
  Sender: FDA-Public Use
  Company Number: JP-JNJFOC-20160707571

PATIENT
  Age: 54 Year
  Sex: Female

DRUGS (6)
  1. DICLOFENAC SODIUM. [Suspect]
     Active Substance: DICLOFENAC SODIUM
     Indication: CANCER PAIN
     Route: 048
     Dates: start: 20160219
  2. GASTER [Suspect]
     Active Substance: FAMOTIDINE
     Indication: ABDOMINAL DISCOMFORT
     Route: 048
     Dates: start: 20160507
  3. SELBEX [Suspect]
     Active Substance: TEPRENONE
     Indication: ABDOMINAL DISCOMFORT
     Route: 048
     Dates: start: 20160405
  4. SELBEX [Suspect]
     Active Substance: TEPRENONE
     Indication: ABDOMINAL DISCOMFORT
     Route: 048
     Dates: start: 20160219, end: 20160404
  5. CYTOTEC [Suspect]
     Active Substance: MISOPROSTOL
     Indication: PRODUCT USED FOR UNKNOWN INDICATION
     Route: 048
     Dates: start: 20160606, end: 20160606
  6. TRAMAL OD [Suspect]
     Active Substance: TRAMADOL
     Indication: CANCER PAIN
     Route: 048
     Dates: start: 20160302, end: 20160709

REACTIONS (6)
  - Dysgeusia [Recovered/Resolved]
  - Gastrooesophageal reflux disease [Recovered/Resolved]
  - Constipation [Recovered/Resolved]
  - Somnolence [Recovered/Resolved]
  - Decreased appetite [Recovering/Resolving]
  - Abdominal discomfort [Recovered/Resolved]

NARRATIVE: CASE EVENT DATE: 20160401
